FAERS Safety Report 11762208 (Version 1)
Quarter: 2015Q4

REPORT INFORMATION
  Report Type: Spontaneous
  Country: US (occurrence: US)
  Receive Date: 20151120
  Receipt Date: 20151120
  Transmission Date: 20160304
  Serious: No
  Sender: FDA-Public Use
  Company Number: US-GLAXOSMITHKLINE-US2015162459

PATIENT
  Age: 73 Year
  Sex: Female

DRUGS (7)
  1. BRINTELLIX [Concomitant]
     Active Substance: VORTIOXETINE HYDROBROMIDE
  2. GUAIFENESIN. [Concomitant]
     Active Substance: GUAIFENESIN
  3. SYNTHROID [Concomitant]
     Active Substance: LEVOTHYROXINE SODIUM
  4. NORVASC [Concomitant]
     Active Substance: AMLODIPINE BESYLATE
  5. METFORMIN [Concomitant]
     Active Substance: METFORMIN HYDROCHLORIDE
  6. ADVAIR DISKUS [Suspect]
     Active Substance: FLUTICASONE PROPIONATE\SALMETEROL XINAFOATE
     Indication: BRONCHITIS
     Dosage: UNK
     Route: 055
     Dates: start: 20151111
  7. NIACIN ER [Concomitant]
     Active Substance: NIACIN

REACTIONS (4)
  - Haemoptysis [Unknown]
  - Fatigue [Unknown]
  - Productive cough [Unknown]
  - Device use error [Unknown]

NARRATIVE: CASE EVENT DATE: 20151111
